FAERS Safety Report 4887739-9 (Version None)
Quarter: 2006Q1

REPORT INFORMATION
  Report Type: 
  Country: None (occurrence: None)
  Receive Date: 20060118
  Receipt Date: 20060109
  Transmission Date: 20060701
  Serious: Yes (Hospitalization)
  Sender: FDA-Public Use
  Company Number: 13187

PATIENT
  Age: 56 Year
  Sex: Female
  Weight: 48.1 kg

DRUGS (12)
  1. CYTARABINE [Suspect]
     Indication: LEUKAEMIA RECURRENT
     Dates: start: 20040615
  2. ETOPOSIDE [Suspect]
     Indication: LEUKAEMIA RECURRENT
     Dates: start: 20040615
  3. MITOXANTRONE [Suspect]
     Indication: LEUKAEMIA RECURRENT
     Dates: start: 20040615
  4. CEP-701 [Suspect]
     Indication: LEUKAEMIA RECURRENT
     Dosage: 80 MG BID PO
     Route: 048
     Dates: start: 20040621, end: 20040721
  5. CEP-701 [Suspect]
     Indication: LEUKAEMIA RECURRENT
     Dosage: 40 MG BID PO
     Route: 048
     Dates: start: 20040722, end: 20040722
  6. CEP-701 [Suspect]
     Indication: LEUKAEMIA RECURRENT
     Dosage: 60 MG BID PO
     Route: 048
     Dates: start: 20040726, end: 20040728
  7. CEP-701 [Suspect]
     Indication: LEUKAEMIA RECURRENT
     Dosage: 60 MG QD PO
     Route: 048
     Dates: start: 20040729, end: 20040729
  8. TEQUIN [Concomitant]
  9. ACETAMINOPHEN [Concomitant]
  10. DIPHENHYDRAMINE [Concomitant]
  11. DARVON [Concomitant]
  12. VALACYCLOVIR HCL [Concomitant]

REACTIONS (3)
  - FEBRILE NEUTROPENIA [None]
  - NAUSEA [None]
  - VOMITING [None]
